FAERS Safety Report 5666537-2 (Version None)
Quarter: 2008Q1

REPORT INFORMATION
  Report Type: 
  Country: None (occurrence: None)
  Receive Date: 20080314
  Receipt Date: 20071213
  Transmission Date: 20080703
  Serious: No
  Sender: FDA-Public Use
  Company Number: US-ABBOTT-07P-163-0430959-00

PATIENT
  Sex: Male

DRUGS (13)
  1. HUMIRA [Suspect]
     Indication: SWEAT GLAND INFECTION
     Route: 058
     Dates: start: 20071001
  2. METFORMIN [Concomitant]
     Indication: DIABETES MELLITUS
  3. PIOGLITAZONE [Concomitant]
     Indication: DIABETES MELLITUS
  4. FUROSEMIDE [Concomitant]
     Indication: HYPERTENSION
  5. LISINOPRIL [Concomitant]
     Indication: HYPERTENSION
  6. ATORVASTATIN CALCIUM [Concomitant]
     Indication: BLOOD CHOLESTEROL INCREASED
  7. METOPROLOL SUCCINATE [Concomitant]
     Indication: HYPERTENSION
  8. DULOXETINE HYDROCHLORIDE [Concomitant]
     Indication: DEPRESSION
  9. ACETYLSALICYLIC ACID [Concomitant]
     Indication: DRUG USE FOR UNKNOWN INDICATION
  10. EZETIMIBE [Concomitant]
     Indication: BLOOD CHOLESTEROL INCREASED
  11. INSULIN [Concomitant]
     Indication: DIABETES MELLITUS
  12. LANTUS [Concomitant]
     Indication: DIABETES MELLITUS
  13. LANSOPRAZOLE [Concomitant]
     Indication: GASTROOESOPHAGEAL REFLUX DISEASE

REACTIONS (1)
  - DRUG INEFFECTIVE [None]
